FAERS Safety Report 10408605 (Version 3)
Quarter: 2014Q4

REPORT INFORMATION
  Report Type: Spontaneous
  Country: JP (occurrence: JP)
  Receive Date: 20140826
  Receipt Date: 20141006
  Transmission Date: 20150528
  Serious: Yes (Death)
  Sender: FDA-Public Use
  Company Number: PHHY2014JP105681

PATIENT
  Age: 82 Year
  Sex: Male
  Weight: 47 kg

DRUGS (2)
  1. EXELON PATCH [Suspect]
     Active Substance: RIVASTIGMINE
     Indication: DEMENTIA WITH LEWY BODIES
     Dosage: 4.5 MG DAILY (DAILY DOSE: 1.9MG/24HOURS)
     Route: 062
     Dates: start: 20140809
  2. EXELON PATCH [Suspect]
     Active Substance: RIVASTIGMINE
     Indication: PROPHYLAXIS

REACTIONS (1)
  - Completed suicide [Fatal]

NARRATIVE: CASE EVENT DATE: 20140822
